FAERS Safety Report 9718547 (Version 1)
Quarter: 2013Q4

REPORT INFORMATION
  Report Type: Not Available
  Country: US (occurrence: US)
  Receive Date: 20131125
  Receipt Date: 20131125
  Transmission Date: 20140711
  Serious: No
  Sender: FDA-Public Use
  Company Number: US-VIVUS-2013V1000780

PATIENT
  Age: 45 Year
  Sex: Female
  Weight: 237.62 kg

DRUGS (7)
  1. QSYMIA 7.5MG/46MG [Suspect]
     Indication: WEIGHT DECREASED
     Route: 048
     Dates: start: 20130827, end: 20130920
  2. QSYMIA 15MG/92MG [Suspect]
     Indication: WEIGHT DECREASED
     Route: 048
     Dates: start: 20130921
  3. QSYMIA 3.75MG/23MG [Suspect]
     Indication: WEIGHT DECREASED
     Route: 048
     Dates: start: 20130813, end: 20130826
  4. ATENOLOL [Concomitant]
     Indication: HYPERTENSION
     Route: 048
     Dates: start: 2003
  5. LISINOPRIL [Concomitant]
     Indication: HYPERTENSION
     Route: 048
     Dates: start: 2009
  6. PROZAC [Concomitant]
     Indication: PRODUCT USED FOR UNKNOWN INDICATION
     Route: 048
     Dates: start: 2012
  7. LORTAB [Concomitant]
     Indication: BACK PAIN
     Route: 048
     Dates: start: 2008

REACTIONS (2)
  - Body tinea [Not Recovered/Not Resolved]
  - Oral candidiasis [Recovered/Resolved]
